FAERS Safety Report 4380046-2 (Version None)
Quarter: 2004Q2

REPORT INFORMATION
  Report Type: 
  Country: None (occurrence: None)
  Receive Date: 20040614
  Receipt Date: 20040526
  Transmission Date: 20050107
  Serious: Yes (Hospitalization)
  Sender: FDA-Public Use
  Company Number: 198658

PATIENT
  Age: 29 Year
  Sex: Male
  Weight: 68 kg

DRUGS (2)
  1. AVONEX ^BIOGEN^ [Suspect]
     Indication: MULTIPLE SCLEROSIS
     Dosage: 30 MCG QW IM
     Route: 030
     Dates: start: 20040315
  2. SEROXAT [Concomitant]

REACTIONS (4)
  - BALANCE DISORDER [None]
  - DIFFICULTY IN WALKING [None]
  - FATIGUE [None]
  - VISUAL DISTURBANCE [None]
